FAERS Safety Report 14236233 (Version 6)
Quarter: 2018Q4

REPORT INFORMATION
  Report Type: Other
  Country: CA (occurrence: CA)
  Receive Date: 20171129
  Receipt Date: 20181107
  Transmission Date: 20190204
  Serious: Yes (Disabling, Other)
  Sender: FDA-Public Use
  Company Number: CA-CELLTRION INC.-2017CA016392

PATIENT

DRUGS (42)
  1. ENBREL [Suspect]
     Active Substance: ETANERCEPT
     Indication: RHEUMATOID ARTHRITIS
     Route: 058
  2. APO IBUPROFEN [Suspect]
     Active Substance: IBUPROFEN
     Indication: PRODUCT USED FOR UNKNOWN INDICATION
     Dosage: 600 MG, UNK
     Route: 048
  3. STELARA [Suspect]
     Active Substance: USTEKINUMAB
     Indication: PSORIATIC ARTHROPATHY
     Route: 058
  4. ORENCIA [Suspect]
     Active Substance: ABATACEPT
     Dosage: 30 MG
     Route: 048
  5. OTEZLA [Suspect]
     Active Substance: APREMILAST
     Indication: PSORIASIS
  6. APREMILAST [Suspect]
     Active Substance: APREMILAST
     Indication: PSORIATIC ARTHROPATHY
     Dosage: 30 MG, 2X/DAY
     Route: 048
  7. APREMILAST [Suspect]
     Active Substance: APREMILAST
     Indication: RHEUMATOID ARTHRITIS
  8. METHOTREXATE. [Concomitant]
     Active Substance: METHOTREXATE
  9. GRAVOL [Concomitant]
     Active Substance: DIMENHYDRINATE
  10. ENBREL [Suspect]
     Active Substance: ETANERCEPT
     Indication: PSORIATIC ARTHROPATHY
  11. MOTRIN CHILDREN [Suspect]
     Active Substance: IBUPROFEN
     Indication: PRODUCT USED FOR UNKNOWN INDICATION
     Dosage: 600 MG, UNK
     Route: 048
  12. CERTOLIZUMAB PEGOL RECOMBINANT [Suspect]
     Active Substance: CERTOLIZUMAB PEGOL
     Indication: PSORIATIC ARTHROPATHY
     Route: 058
  13. ENBREL [Suspect]
     Active Substance: ETANERCEPT
     Indication: PSORIASIS
  14. APO-LEFLUNOMIDE [Suspect]
     Active Substance: LEFLUNOMIDE
     Indication: PRODUCT USED FOR UNKNOWN INDICATION
     Dosage: UNK
     Route: 048
  15. CIMZIA [Suspect]
     Active Substance: CERTOLIZUMAB PEGOL
     Indication: PSORIATIC ARTHROPATHY
     Route: 058
  16. OTEZLA [Suspect]
     Active Substance: APREMILAST
     Indication: PSORIATIC ARTHROPATHY
     Dosage: 30 MG, BID
     Route: 048
  17. MOTRIN [Suspect]
     Active Substance: IBUPROFEN
     Indication: PRODUCT USED FOR UNKNOWN INDICATION
     Dosage: 6 DF, 1X/DAY
     Route: 048
  18. METHOTREXATE SODIUM. [Concomitant]
     Active Substance: METHOTREXATE SODIUM
  19. HUMIRA [Suspect]
     Active Substance: ADALIMUMAB
     Indication: PSORIATIC ARTHROPATHY
     Route: 058
  20. OTEZLA [Suspect]
     Active Substance: APREMILAST
     Indication: RHEUMATOID ARTHRITIS
  21. SIMPONI [Suspect]
     Active Substance: GOLIMUMAB
     Indication: PSORIATIC ARTHROPATHY
     Route: 058
  22. APREMILAST [Suspect]
     Active Substance: APREMILAST
     Indication: PSORIASIS
  23. NITRAZEPAM [Concomitant]
     Active Substance: NITRAZEPAM
  24. FOLIC ACID. [Concomitant]
     Active Substance: FOLIC ACID
  25. OXYNEO [Concomitant]
     Active Substance: OXYCODONE
  26. BENADRYL [Concomitant]
     Active Substance: DIPHENHYDRAMINE HYDROCHLORIDE
  27. INFLIXIMAB PFIZER (UNKNOWN) [Suspect]
     Active Substance: INFLIXIMAB
     Indication: PSORIATIC ARTHROPATHY
     Route: 065
  28. APO-CYCLOSPORINE [Suspect]
     Active Substance: CYCLOSPORINE
     Indication: PRODUCT USED FOR UNKNOWN INDICATION
     Route: 048
  29. CICLOSPORIN 1A-PHARMA [Suspect]
     Active Substance: CYCLOSPORINE
     Indication: PRODUCT USED FOR UNKNOWN INDICATION
     Route: 048
  30. OXYCODONE HYDROCHLORIDE AND IBUPROFEN [Concomitant]
     Active Substance: IBUPROFEN\OXYCODONE HYDROCHLORIDE
  31. ORENCIA [Suspect]
     Active Substance: ABATACEPT
     Indication: PSORIATIC ARTHROPATHY
  32. COLCHICINE. [Concomitant]
     Active Substance: COLCHICINE
  33. ULORIC [Concomitant]
     Active Substance: FEBUXOSTAT
  34. MOGADON [Concomitant]
     Active Substance: NITRAZEPAM
  35. ADALIMUMAB [Suspect]
     Active Substance: ADALIMUMAB
     Indication: PSORIATIC ARTHROPATHY
     Route: 058
  36. ABATACEPT RECOMBINANT [Suspect]
     Active Substance: ABATACEPT
     Indication: PSORIATIC ARTHROPATHY
     Route: 065
  37. USTEKINUMAB [Suspect]
     Active Substance: USTEKINUMAB
     Indication: PSORIATIC ARTHROPATHY
     Route: 065
  38. OXYCODONE [Concomitant]
     Active Substance: OXYCODONE
  39. SULFASALAZINE GF [Suspect]
     Active Substance: SULFASALAZINE
     Indication: PRODUCT USED FOR UNKNOWN INDICATION
     Dosage: 500 MG, UNK
     Route: 005
  40. GOLIMUMAB [Suspect]
     Active Substance: GOLIMUMAB
     Indication: PSORIATIC ARTHROPATHY
     Route: 058
  41. DEXILANT [Concomitant]
     Active Substance: DEXLANSOPRAZOLE
  42. FEBUXOSTAT. [Concomitant]
     Active Substance: FEBUXOSTAT

REACTIONS (19)
  - Erythema [Unknown]
  - Alanine aminotransferase abnormal [Unknown]
  - Drug intolerance [Unknown]
  - Tongue disorder [Unknown]
  - Headache [Unknown]
  - Drug ineffective [Unknown]
  - Psoriatic arthropathy [Unknown]
  - Enthesopathy [Unknown]
  - Tenosynovitis [Unknown]
  - Generalised erythema [Unknown]
  - Nausea [Unknown]
  - C-reactive protein abnormal [Unknown]
  - Loss of personal independence in daily activities [Unknown]
  - Alanine aminotransferase increased [Unknown]
  - Synovitis [Unknown]
  - Drug hypersensitivity [Unknown]
  - Aspartate aminotransferase increased [Unknown]
  - Treatment failure [Unknown]
  - Tendonitis [Unknown]
